FAERS Safety Report 4497382-1 (Version None)
Quarter: 2004Q4

REPORT INFORMATION
  Report Type: 
  Country: None (occurrence: None)
  Receive Date: 20041104
  Receipt Date: 20041027
  Transmission Date: 20050328
  Serious: Yes (Death, Hospitalization)
  Sender: FDA-Public Use
  Company Number: 2004-121642-NL

PATIENT
  Age: 72 Year
  Sex: Female

DRUGS (16)
  1. HEXADROL PHOSPHATE [Suspect]
     Indication: MULTIPLE MYELOMA
     Dosage: 40 MG QD ORAL
     Route: 048
     Dates: start: 20021010, end: 20021212
  2. MEPROBAMATE [Concomitant]
  3. PANTOPRAZOLE [Concomitant]
  4. DARBEPOETIN [Concomitant]
  5. IRBESARTAN WITH HYDROCHLOROTHIAZIDE [Concomitant]
  6. CLONIDINE [Concomitant]
  7. DOCUSATE SODIUM [Concomitant]
  8. DAPSONE [Concomitant]
  9. PAROXETINE [Concomitant]
  10. ALLOPURINOL [Concomitant]
  11. FENTANYL [Concomitant]
  12. OXYCODONE HCL [Concomitant]
  13. MULTI-VITAMINS [Concomitant]
  14. ASPIRIN [Concomitant]
  15. PAMIDRONATE DISODIUM [Concomitant]
  16. ONDANSETRON [Concomitant]

REACTIONS (15)
  - ANAEMIA [None]
  - ANOREXIA [None]
  - ASTHENIA [None]
  - BACK PAIN [None]
  - CHEST PAIN [None]
  - DISEASE PROGRESSION [None]
  - DRUG INEFFECTIVE [None]
  - DYSPNOEA [None]
  - MULTI-ORGAN FAILURE [None]
  - MULTIPLE MYELOMA [None]
  - NAUSEA [None]
  - OEDEMA PERIPHERAL [None]
  - PACKED RED BLOOD CELL TRANSFUSION [None]
  - PNEUMONIA [None]
  - RENAL FAILURE [None]
